FAERS Safety Report 5960201-8 (Version None)
Quarter: 2008Q4

REPORT INFORMATION
  Report Type: 
  Country: None (occurrence: None)
  Receive Date: 20081120
  Receipt Date: 20081112
  Transmission Date: 20090506
  Serious: Yes (Other)
  Sender: FDA-Public Use
  Company Number: PR-ABBOTT-08P-131-0487109-00

PATIENT
  Sex: Female
  Weight: 54.48 kg

DRUGS (4)
  1. HUMIRA [Suspect]
     Indication: PSORIASIS
     Route: 058
     Dates: start: 20080901
  2. LISINOPRIL [Concomitant]
     Indication: HYPERTENSION
     Route: 048
  3. GLIPIZIDE [Concomitant]
     Indication: TYPE 1 DIABETES MELLITUS
     Route: 048
  4. PREDNISONE TAB [Concomitant]
     Indication: PSORIASIS
     Route: 048

REACTIONS (3)
  - PAIN [None]
  - PSORIASIS [None]
  - SKIN SWELLING [None]
